FAERS Safety Report 25620964 (Version 1)
Quarter: 2025Q3

REPORT INFORMATION
  Report Type: Spontaneous
  Country: US (occurrence: US)
  Receive Date: 20250730
  Receipt Date: 20250730
  Transmission Date: 20251021
  Serious: Yes (Other)
  Sender: AMNEAL
  Company Number: US-AMNEAL-2024-AMRX-04241

PATIENT
  Sex: Male

DRUGS (3)
  1. BACLOFEN [Suspect]
     Active Substance: BACLOFEN
     Indication: Product used for unknown indication
     Route: 037
  2. BACLOFEN [Suspect]
     Active Substance: BACLOFEN
     Route: 037
  3. BACLOFEN [Suspect]
     Active Substance: BACLOFEN
     Dosage: 283.6 MICROGRAM (2000 MCG/ML), QD
     Route: 037

REACTIONS (4)
  - Withdrawal syndrome [Recovered/Resolved]
  - Symptom recurrence [Recovered/Resolved]
  - Muscle spasticity [Recovered/Resolved]
  - Device physical property issue [Unknown]

NARRATIVE: CASE EVENT DATE: 20240101
